FAERS Safety Report 7460999-6 (Version None)
Quarter: 2011Q2

REPORT INFORMATION
  Report Type: 
  Country: None (occurrence: None)
  Receive Date: 20110505
  Receipt Date: 20110422
  Transmission Date: 20111010
  Serious: Yes (Hospitalization, Other)
  Sender: FDA-Public Use
  Company Number: US-ELI_LILLY_AND_COMPANY-US201012005184

PATIENT
  Sex: Female
  Weight: 65.7 kg

DRUGS (12)
  1. MAXZIDE [Concomitant]
     Dosage: 25 MG, DAILY (1/D)
  2. VOLTAREN                                /SCH/ [Concomitant]
     Dosage: 75 MG, DAILY (1/D)
  3. KLOR-CON [Concomitant]
     Dosage: 10-10 MEQ, UNK
  4. PROMETHAZINE [Concomitant]
     Indication: NAUSEA
     Dosage: 25 MG, AS NEEDED
  5. CIPRO [Concomitant]
     Dosage: UNK, UNKNOWN
     Route: 065
  6. LASIX [Concomitant]
     Dosage: 40 MG, DAILY (1/D) (1/2 TO 1 TABLET DAILY)
  7. LORTAB [Concomitant]
     Dosage: 10.5 MG, AS NEEDED
  8. PERCOCET [Concomitant]
     Dosage: EVERY 4 HRS
  9. SYNTHROID [Concomitant]
     Dosage: 25 MG, DAILY (1/D)
  10. CELEXA [Concomitant]
     Dosage: 40 MG, 2/D
  11. FORTEO [Suspect]
     Indication: OSTEOPOROSIS
     Dosage: 20 UG, DAILY (1/D)
     Dates: start: 20100801
  12. MORPHINE SULFATE [Concomitant]
     Dosage: 100 MG, EVERY 8 HRS

REACTIONS (7)
  - OSTEOARTHRITIS [None]
  - PNEUMONIA [None]
  - RASH MACULAR [None]
  - FIBROMYALGIA [None]
  - HYPERSENSITIVITY [None]
  - DRUG DOSE OMISSION [None]
  - RENAL CELL CARCINOMA [None]
